FAERS Safety Report 5700757-3 (Version None)
Quarter: 2008Q2

REPORT INFORMATION
  Report Type: 
  Country: None (occurrence: None)
  Receive Date: 20080410
  Receipt Date: 20080311
  Transmission Date: 20081010
  Serious: No
  Sender: FDA-Public Use
  Company Number: A0714633A

PATIENT
  Age: 62 Year
  Sex: Female

DRUGS (3)
  1. TYKERB [Suspect]
     Indication: BREAST CANCER
     Dosage: 1250MG PER DAY
     Route: 048
     Dates: start: 20080203
  2. BLOOD PRESSURE MEDICATION [Concomitant]
  3. CHEMOTHERAPY [Concomitant]

REACTIONS (1)
  - RASH PRURITIC [None]
